FAERS Safety Report 16576994 (Version 2)
Quarter: 2019Q3

REPORT INFORMATION
  Report Type: Spontaneous
  Country: FR (occurrence: FR)
  Receive Date: 20190716
  Receipt Date: 20190730
  Transmission Date: 20191004
  Serious: Yes (Other)
  Sender: FDA-Public Use
  Company Number: FR-AUROBINDO-AUR-APL-2019-039903

PATIENT

DRUGS (2)
  1. AMOXICILLIN ARROW  DISPERSIBLE TABLET 1G [Suspect]
     Active Substance: AMOXICILLIN
     Indication: POSTOPERATIVE WOUND INFECTION
     Dosage: 6 DOSAGE FORM, DAILY
     Route: 042
     Dates: start: 20190614, end: 20190618
  2. RIMACTAN [Suspect]
     Active Substance: RIFAMPIN
     Indication: POSTOPERATIVE WOUND INFECTION
     Dosage: 6 DOSAGE FORM, DAILY
     Route: 042
     Dates: start: 20190615, end: 20190619

REACTIONS (4)
  - Hyperleukocytosis [Recovered/Resolved]
  - Pyrexia [Recovered/Resolved]
  - Eosinophilia [Recovered/Resolved]
  - Dermatitis exfoliative generalised [Recovered/Resolved]

NARRATIVE: CASE EVENT DATE: 20190618
